FAERS Safety Report 4777894-3 (Version None)
Quarter: 2005Q3

REPORT INFORMATION
  Report Type: 
  Country: None (occurrence: None)
  Receive Date: 20050922
  Receipt Date: 20050909
  Transmission Date: 20060218
  Serious: Yes (Other)
  Sender: FDA-Public Use
  Company Number: 2005126593

PATIENT
  Sex: Male
  Weight: 84.8226 kg

DRUGS (1)
  1. VIAGRA [Suspect]
     Indication: ORGANIC ERECTILE DYSFUNCTION
     Dosage: (100 MG)
     Dates: start: 20030117

REACTIONS (1)
  - OPTIC ISCHAEMIC NEUROPATHY [None]
